FAERS Safety Report 5737802-5 (Version None)
Quarter: 2008Q2

REPORT INFORMATION
  Report Type: 
  Country: None (occurrence: None)
  Receive Date: 20080512
  Receipt Date: 20080512
  Transmission Date: 20081010
  Serious: No
  Sender: FDA-Public Use
  Company Number: None

PATIENT

DRUGS (1)
  1. SENSORCAINE [Suspect]
     Indication: POSTOPERATIVE ANALGESIA
     Dosage: 20 CC  1X    NERVE BLOCK
     Dates: start: 20080401

REACTIONS (2)
  - DRUG EFFECT DECREASED [None]
  - PHARMACEUTICAL PRODUCT COMPLAINT [None]
